FAERS Safety Report 6340882-X (Version None)
Quarter: 2009Q3

REPORT INFORMATION
  Report Type: 
  Country: None (occurrence: None)
  Receive Date: 20090904
  Receipt Date: 20090827
  Transmission Date: 20100115
  Serious: Yes (Hospitalization)
  Sender: FDA-Public Use
  Company Number: ES-WYE-G04335109

PATIENT
  Age: 67 Year
  Sex: Male
  Weight: 83 kg

DRUGS (13)
  1. VANDRAL RETARD [Suspect]
     Route: 048
  2. FUROSEMIDE [Concomitant]
     Route: 048
  3. LORAZEPAM [Concomitant]
     Route: 045
  4. OMEPRAZOLE [Concomitant]
     Route: 048
  5. AMLODIPINE [Concomitant]
     Route: 048
  6. SEDOTIME [Concomitant]
     Route: 048
  7. LEVOTHROID [Concomitant]
     Route: 048
  8. IDEOS [Concomitant]
     Route: 048
  9. TROMALYT [Concomitant]
     Dosage: 150 MG
  10. HIDROALTESONA [Concomitant]
  11. DEPAKENE [Concomitant]
  12. SIMVASTATIN [Concomitant]
     Route: 048
  13. LIORESAL [Concomitant]

REACTIONS (3)
  - ANKLE FRACTURE [None]
  - FALL [None]
  - HUMERUS FRACTURE [None]
